FAERS Safety Report 11746294 (Version 1)
Quarter: 2015Q4

REPORT INFORMATION
  Report Type: Spontaneous
  Country: FR (occurrence: FR)
  Receive Date: 20151117
  Receipt Date: 20151117
  Transmission Date: 20160304
  Serious: Yes (Hospitalization)
  Sender: FDA-Public Use
  Company Number: FR-EMD SERONO-8052272

PATIENT
  Age: 34 Year
  Sex: Female

DRUGS (3)
  1. OVITRELLE [Suspect]
     Active Substance: CHORIOGONADOTROPIN ALFA
     Indication: PRODUCT USED FOR UNKNOWN INDICATION
     Dosage: 250 MICROGRAMS/0.5 ML SOLUTION FOR INJECTION IN A PRE-FILLED SYRINGE
     Route: 058
     Dates: start: 20140727
  2. FOSTIMON [Suspect]
     Active Substance: UROFOLLITROPIN
     Indication: PRODUCT USED FOR UNKNOWN INDICATION
     Dosage: POWDER AND SOLVENT FOR SOLUTION FOR INJECTION IN A PRE-FILLED SYRINGE
     Route: 058
     Dates: start: 20140718, end: 20140726
  3. ORGALUTRAN [Suspect]
     Active Substance: GANIRELIX ACETATE
     Indication: PRODUCT USED FOR UNKNOWN INDICATION
     Dosage: 0.25 MG/0.5 ML
     Route: 058
     Dates: start: 201407, end: 201407

REACTIONS (2)
  - Ascites [Recovered/Resolved]
  - Ovarian hyperstimulation syndrome [Recovered/Resolved]

NARRATIVE: CASE EVENT DATE: 20140810
